FAERS Safety Report 19753757 (Version 1)
Quarter: 2021Q3

REPORT INFORMATION
  Report Type: Spontaneous
  Country: US (occurrence: US)
  Receive Date: 20210824
  Receipt Date: 20210824
  Transmission Date: 20211014
  Serious: Yes (Hospitalization)
  Sender: FDA-Public Use
  Company Number: None

PATIENT
  Sex: Female

DRUGS (1)
  1. TADALAFIL 20MG CIPLA USA [Suspect]
     Active Substance: TADALAFIL
     Indication: LUNG DISORDER
     Route: 048
     Dates: start: 20210702, end: 20210730

REACTIONS (5)
  - Vision blurred [None]
  - Vomiting [None]
  - Internal haemorrhage [None]
  - Haematochezia [None]
  - Nausea [None]
